FAERS Safety Report 6904259-8 (Version None)
Quarter: 2010Q3

REPORT INFORMATION
  Report Type: 
  Country: None (occurrence: None)
  Receive Date: 20100804
  Receipt Date: 20090407
  Transmission Date: 20110219
  Serious: No
  Sender: FDA-Public Use
  Company Number: US-PFIZER INC-2009174697

PATIENT
  Sex: Male

DRUGS (2)
  1. LYRICA [Suspect]
     Indication: NEURALGIA
     Dosage: UNKNOWN
  2. LYRICA [Suspect]
     Dosage: 150 MG, 3X/DAY

REACTIONS (2)
  - AMNESIA [None]
  - NEURALGIA [None]
